FAERS Safety Report 9394967 (Version 1)
Quarter: 2013Q3

REPORT INFORMATION
  Report Type: Report from Study
  Country: US (occurrence: US)
  Receive Date: 20130711
  Receipt Date: 20130711
  Transmission Date: 20140515
  Serious: Yes (Other)
  Sender: FDA-Public Use
  Company Number: US-SANOFI-AVENTIS-2013SA069539

PATIENT
  Age: 36 Year
  Sex: Female
  Weight: 104.32 kg

DRUGS (17)
  1. AUBAGIO [Suspect]
     Indication: MULTIPLE SCLEROSIS
     Route: 048
     Dates: end: 20130603
  2. ACTHAR HP [Concomitant]
     Dosage: DOSE:80 UNIT(S)
  3. CALCIUM [Concomitant]
  4. VITAMIN D3 [Concomitant]
     Dosage: DOSE:1000 UNIT(S)
  5. MAGNESIUM [Concomitant]
  6. VITAMIN C [Concomitant]
  7. MELATONIN [Concomitant]
  8. OMEGA 3 [Concomitant]
  9. FIORICET [Concomitant]
  10. NAPROXEN [Concomitant]
  11. SALBUTAMOL SULFATE [Concomitant]
  12. NEXIUM [Concomitant]
  13. DIAZEPAM [Concomitant]
     Dosage: 5MG/5ML
  14. OLOPATADINE HYDROCHLORIDE [Concomitant]
  15. AZELASTINE HYDROCHLORIDE [Concomitant]
  16. EPIPEN [Concomitant]
  17. ZOLOFT [Concomitant]

REACTIONS (3)
  - Multiple sclerosis relapse [Unknown]
  - Optic neuritis [Unknown]
  - Drug ineffective [Unknown]
